FAERS Safety Report 22110960 (Version 2)
Quarter: 2023Q1

REPORT INFORMATION
  Report Type: Spontaneous
  Country: CN (occurrence: None)
  Receive Date: 20230317
  Receipt Date: 20230320
  Transmission Date: 20230417
  Serious: Yes (Death)
  Sender: FDA-Public Use
  Company Number: 2023A064036

PATIENT
  Age: 70 Year
  Sex: Male
  Weight: 100 kg

DRUGS (1)
  1. IMFINZI [Suspect]
     Active Substance: DURVALUMAB
     Indication: Non-small cell lung cancer stage III
     Dosage: HAD BEEN ADMINISTERED FOR 2 CYCLES AND LAST DOSE WAS 1500 MG/CYCLE. USING SPECIFICATION: 500MG/10...
     Route: 042
     Dates: start: 20200525, end: 202212

REACTIONS (1)
  - COVID-19 pneumonia [Fatal]
